FAERS Safety Report 9032604 (Version 1)
Quarter: 2013Q1

REPORT INFORMATION
  Report Type: Spontaneous
  Country: GB (occurrence: None)
  Receive Date: 20130109
  Receipt Date: 20130109
  Transmission Date: 20140127
  Serious: Yes (Hospitalization)
  Sender: FDA-Public Use
  Company Number: AUR-APL-2013-00024

PATIENT
  Sex: Female

DRUGS (10)
  1. FLUCONAZOLE [Suspect]
     Indication: ORAL CANDIDIASIS
     Route: 048
     Dates: start: 20110429, end: 20110504
  2. AMOXICILLIN (AMOXICILLIN) [Suspect]
     Indication: PRODUCT USED FOR UNKNOWN INDICATION
     Route: 048
     Dates: start: 20110209, end: 20110216
  3. CEFACLOR [Suspect]
     Indication: PRODUCT USED FOR UNKNOWN INDICATION
     Route: 048
     Dates: start: 20110408, end: 20110415
  4. ERTAPENEM (ERTAPENEM) [Suspect]
     Indication: INTESTINAL PERFORATION
     Route: 042
     Dates: start: 20110424, end: 20110505
  5. ALVERINE (ALVERINE) [Concomitant]
  6. ASPIRIN (ACETYLSALICYLIC ACID) [Concomitant]
  7. HYOSCINE BUTYLBROMIDE (HYOSCINE BUTYLBROMIDE) [Concomitant]
  8. LACTULOSE (LACTULOSE) [Concomitant]
  9. LERCANIDIPINE (LERCANIDIPINE) [Concomitant]
  10. SIMVASTATIN (SIMVASTATIN) [Concomitant]

REACTIONS (2)
  - Diarrhoea [None]
  - Clostridium test positive [None]
